FAERS Safety Report 5271633-8 (Version None)
Quarter: 2007Q1

REPORT INFORMATION
  Report Type: 
  Country: None (occurrence: None)
  Receive Date: 20070321
  Receipt Date: 20070313
  Transmission Date: 20070707
  Serious: Yes (Other)
  Sender: FDA-Public Use
  Company Number: ES-MERCK-0607ESP00012

PATIENT
  Age: 80 Year
  Sex: Female
  Weight: 74 kg

DRUGS (22)
  1. INVANZ [Suspect]
     Indication: PNEUMONIA BACTERIAL
     Route: 041
     Dates: start: 20051231, end: 20060109
  2. INVANZ [Suspect]
     Indication: PNEUMONIA ASPIRATION
     Route: 041
     Dates: start: 20051231, end: 20060109
  3. VALPROATE SODIUM [Suspect]
     Indication: EPILEPSY
     Route: 048
     Dates: start: 19950101, end: 20060103
  4. VALPROATE SODIUM [Suspect]
     Route: 048
     Dates: start: 20060104, end: 20060105
  5. VALPROATE SODIUM [Suspect]
     Route: 048
     Dates: start: 20060106, end: 20060109
  6. DEPAKENE [Suspect]
     Indication: EPILEPSY
     Route: 042
     Dates: start: 20060110, end: 20060110
  7. DEPAKENE [Suspect]
     Route: 042
     Dates: start: 20060111, end: 20060120
  8. VALPROATE SODIUM [Concomitant]
     Route: 048
     Dates: start: 20060121
  9. DIGOXIN [Concomitant]
     Route: 065
  10. AMOXICILLIN AND CLAVULANATE POTASSIUM [Concomitant]
     Indication: PNEUMONIA ASPIRATION
     Route: 065
     Dates: start: 20051230, end: 20051231
  11. OMEPRAZOLE [Concomitant]
     Route: 042
     Dates: start: 20051201
  12. ACETAMINOPHEN [Concomitant]
     Indication: PYREXIA
     Route: 042
     Dates: start: 20051201
  13. NITROGEN [Concomitant]
     Indication: PARENTERAL NUTRITION
     Route: 065
     Dates: start: 20051201, end: 20060102
  14. POTASSIUM CHLORIDE [Concomitant]
     Route: 065
     Dates: start: 20051201
  15. DEXTROSE AND SODIUM CHLORIDE [Concomitant]
     Route: 042
     Dates: start: 20051201
  16. METOCLOPRAMIDE [Concomitant]
     Route: 065
     Dates: start: 20051201
  17. DIPYRONE MAGNESIUM [Concomitant]
     Route: 065
     Dates: start: 20051201
  18. TIAPRIDE [Concomitant]
     Route: 065
  19. ENOXAPARIN SODIUM [Concomitant]
     Indication: PROPHYLAXIS
     Route: 058
     Dates: start: 20060101
  20. ENOXAPARIN SODIUM [Concomitant]
     Indication: VENOUS THROMBOSIS
     Route: 058
     Dates: start: 20060101
  21. VALPROATE SODIUM [Concomitant]
     Indication: COMPLEX PARTIAL SEIZURES
     Route: 042
     Dates: start: 20060109, end: 20060109
  22. VALPROATE SODIUM [Concomitant]
     Route: 042
     Dates: start: 20060110, end: 20060110

REACTIONS (2)
  - DRUG INTERACTION [None]
  - DRUG LEVEL DECREASED [None]
